FAERS Safety Report 17735595 (Version 1)
Quarter: 2020Q2

REPORT INFORMATION
  Report Type: Spontaneous
  Country: CA (occurrence: CA)
  Receive Date: 20200501
  Receipt Date: 20200501
  Transmission Date: 20200714
  Serious: Yes (Disabling, Other)
  Sender: FDA-Public Use
  Company Number: CA-BAYER-2020-068529

PATIENT
  Age: 46 Year
  Sex: Female
  Weight: 58 kg

DRUGS (2)
  1. CIPROFLOXACIN BETAIN [Suspect]
     Active Substance: CIPROFLOXACIN
     Indication: INFECTED FISTULA
     Dosage: 2 EVERY 1 DAYS
     Route: 042
  2. SOLU-MEDROL [Concomitant]
     Active Substance: METHYLPREDNISOLONE SODIUM SUCCINATE

REACTIONS (10)
  - Tendon pain [Not Recovered/Not Resolved]
  - Fibromyalgia [Not Recovered/Not Resolved]
  - Insomnia [Not Recovered/Not Resolved]
  - Myalgia [Not Recovered/Not Resolved]
  - Cognitive disorder [Not Recovered/Not Resolved]
  - Gait disturbance [Not Recovered/Not Resolved]
  - Neuralgia [Not Recovered/Not Resolved]
  - Fatigue [Not Recovered/Not Resolved]
  - Speech disorder [Not Recovered/Not Resolved]
  - Tremor [Not Recovered/Not Resolved]
